FAERS Safety Report 14027834 (Version 1)
Quarter: 2017Q3

REPORT INFORMATION
  Report Type: Spontaneous
  Country: US (occurrence: US)
  Receive Date: 20170929
  Receipt Date: 20170929
  Transmission Date: 20171128
  Serious: No
  Sender: FDA-Public Use
  Company Number: US-PFIZER INC-2017418908

PATIENT
  Age: 72 Year
  Sex: Female
  Weight: 80.27 kg

DRUGS (12)
  1. MELOXICAM. [Concomitant]
     Active Substance: MELOXICAM
     Indication: MUSCLE RELAXANT THERAPY
     Dosage: 15 MG, 1X/DAY
     Route: 048
  2. SEROQUEL [Concomitant]
     Active Substance: QUETIAPINE FUMARATE
     Indication: SLEEP DISORDER
     Dosage: 100 MG, 1X/DAY
  3. CLONAZEPAM. [Concomitant]
     Active Substance: CLONAZEPAM
     Dosage: 1 MG, 3X/DAY
  4. PRAVASTATIN SODIUM. [Concomitant]
     Active Substance: PRAVASTATIN SODIUM
     Indication: CARDIAC DISORDER
     Dosage: 20 MG, 1X/DAY
  5. METOPROLOL SUCCINATE. [Concomitant]
     Active Substance: METOPROLOL SUCCINATE
     Dosage: 25 MG, 1X/DAY
  6. OMEPRAZOLE. [Concomitant]
     Active Substance: OMEPRAZOLE
     Indication: GASTROOESOPHAGEAL REFLUX DISEASE
     Dosage: 20 MG, 2X/DAY
  7. OXYCODONE [Concomitant]
     Active Substance: OXYCODONE
     Indication: PAIN
     Dosage: 10.325 MG, UNK
  8. TYLENOL [Concomitant]
     Active Substance: ACETAMINOPHEN
     Indication: PAIN
     Dosage: UNK
  9. TRIAMTERENE AND HYDROCHLOROTHIAZIDE [Concomitant]
     Active Substance: HYDROCHLOROTHIAZIDE\TRIAMTERENE
     Indication: CARDIAC DISORDER
     Dosage: [TRIAMTERENE 37.5MG]/[HYDROCHLOROTHIAZIDE 25 MG], 1X/DAY
  10. ASPIRIN /00002701/ [Concomitant]
     Active Substance: ASPIRIN
     Dosage: LOW DOSAGE, EVERY NIGHT
  11. TIZANIDINE HCL [Concomitant]
     Active Substance: TIZANIDINE HYDROCHLORIDE
     Indication: MUSCLE RELAXANT THERAPY
     Dosage: 4 MG, 3X/DAY
     Route: 048
  12. LYRICA [Suspect]
     Active Substance: PREGABALIN
     Indication: FIBROMYALGIA
     Dosage: UNK

REACTIONS (2)
  - Weight increased [Unknown]
  - Body height decreased [Unknown]
